FAERS Safety Report 13414559 (Version 1)
Quarter: 2017Q2

REPORT INFORMATION
  Report Type: Report from Study
  Country: US (occurrence: US)
  Receive Date: 20170407
  Receipt Date: 20170407
  Transmission Date: 20170830
  Serious: Yes (Other)
  Sender: FDA-Public Use
  Company Number: PHEH2017US010192

PATIENT
  Age: 25 Year

DRUGS (1)
  1. GILENYA [Suspect]
     Active Substance: FINGOLIMOD HYDROCHLORIDE
     Indication: PRODUCT USED FOR UNKNOWN INDICATION
     Dosage: UNK
     Route: 065
     Dates: start: 20170331

REACTIONS (3)
  - Hemiparesis [Not Recovered/Not Resolved]
  - Headache [Not Recovered/Not Resolved]
  - Neuralgia [Not Recovered/Not Resolved]

NARRATIVE: CASE EVENT DATE: 20170402
